FAERS Safety Report 5453155-4 (Version None)
Quarter: 2007Q3

REPORT INFORMATION
  Report Type: 
  Country: None (occurrence: None)
  Receive Date: 20070914
  Receipt Date: 20070904
  Transmission Date: 20080115
  Serious: Yes (Other)
  Sender: FDA-Public Use
  Company Number: US-PFIZER INC-2007074289

PATIENT
  Sex: Female
  Weight: 74.4 kg

DRUGS (3)
  1. CHANTIX [Suspect]
     Indication: SMOKING CESSATION THERAPY
     Dates: start: 20070801, end: 20070801
  2. NASONEX [Concomitant]
     Indication: HYPERSENSITIVITY
  3. ALAVERT [Concomitant]
     Indication: HYPERSENSITIVITY

REACTIONS (4)
  - AUTOIMMUNE HEPATITIS [None]
  - BLOOD IRON INCREASED [None]
  - JAUNDICE [None]
  - MALAISE [None]
